FAERS Safety Report 9414434 (Version 3)
Quarter: 2013Q4

REPORT INFORMATION
  Report Type: Report from Study
  Country: JP (occurrence: JP)
  Receive Date: 20130723
  Receipt Date: 20131204
  Transmission Date: 20140711
  Serious: Yes (Hospitalization)
  Sender: FDA-Public Use
  Company Number: JP-GLAXOSMITHKLINE-B0872739A

PATIENT
  Age: 63 Year
  Sex: Male
  Weight: 51 kg

DRUGS (6)
  1. VOTRIENT 200MG [Suspect]
     Indication: UNDIFFERENTIATED SARCOMA
     Dosage: 800MG PER DAY
     Route: 048
     Dates: start: 20121108, end: 20121112
  2. VOTRIENT 200MG [Suspect]
     Indication: UNDIFFERENTIATED SARCOMA
     Dosage: 800MG PER DAY
     Route: 048
     Dates: start: 20121217, end: 20130128
  3. VOTRIENT 200MG [Suspect]
     Indication: UNDIFFERENTIATED SARCOMA
     Dosage: 400MG PER DAY
     Route: 048
     Dates: start: 20130129, end: 20130211
  4. VOTRIENT 200MG [Suspect]
     Indication: UNDIFFERENTIATED SARCOMA
     Dosage: 600MG PER DAY
     Route: 048
     Dates: start: 20130212, end: 20130214
  5. VOTRIENT 200MG [Suspect]
     Indication: UNDIFFERENTIATED SARCOMA
     Dosage: 400MG PER DAY
     Route: 048
     Dates: start: 20130215, end: 20130226
  6. MINOMYCIN [Suspect]
     Indication: PRODUCT USED FOR UNKNOWN INDICATION
     Route: 048

REACTIONS (5)
  - Platelet count decreased [Unknown]
  - Anaemia [Unknown]
  - Postoperative wound infection [Not Recovered/Not Resolved]
  - Hypertension [Unknown]
  - Diarrhoea [Recovering/Resolving]
